FAERS Safety Report 10567925 (Version 1)
Quarter: 2014Q4

REPORT INFORMATION
  Report Type: Spontaneous
  Country: US (occurrence: None)
  Receive Date: 20141105
  Receipt Date: 20141105
  Transmission Date: 20150529
  Serious: Yes (Disabling)
  Sender: FDA-Public Use
  Company Number: None

PATIENT
  Age: 71 Year
  Sex: Female
  Weight: 72.58 kg

DRUGS (1)
  1. LOVASTATIN. [Suspect]
     Active Substance: LOVASTATIN
     Indication: BLOOD CHOLESTEROL DECREASED
     Route: 048

REACTIONS (4)
  - Myalgia [None]
  - Bedridden [None]
  - Pain in extremity [None]
  - Bone pain [None]

NARRATIVE: CASE EVENT DATE: 20141104
